FAERS Safety Report 4318765-6 (Version None)
Quarter: 2004Q1

REPORT INFORMATION
  Report Type: 
  Country: None (occurrence: None)
  Receive Date: 20040315
  Receipt Date: 20040302
  Transmission Date: 20041129
  Serious: Yes (Death)
  Sender: FDA-Public Use
  Company Number: 163-20785-04030091

PATIENT
  Age: 68 Year
  Sex: Male

DRUGS (1)
  1. THALOMID [Suspect]
     Indication: HYPERGAMMAGLOBULINAEMIA BENIGN MONOCLONAL
     Dosage: 200 MG, DAILY, ORAL
     Route: 048
     Dates: start: 20040121, end: 20040211

REACTIONS (2)
  - LABORATORY TEST ABNORMAL [None]
  - TUMOUR ASSOCIATED FEVER [None]
